FAERS Safety Report 7012886-5 (Version None)
Quarter: 2010Q3

REPORT INFORMATION
  Report Type: 
  Country: None (occurrence: None)
  Receive Date: 20100924
  Receipt Date: 20100917
  Transmission Date: 20110219
  Serious: Yes (Hospitalization)
  Sender: FDA-Public Use
  Company Number: PHHO2010IT13657

PATIENT
  Sex: Male
  Weight: 82 kg

DRUGS (2)
  1. NEORAL [Suspect]
     Indication: HEART TRANSPLANT
     Dosage: 100 X2
     Route: 048
     Dates: start: 20100907, end: 20100909
  2. MYCOPHENOLATE MOFETIL [Suspect]
     Indication: HEART TRANSPLANT
     Dosage: 1GR X3
     Route: 048
     Dates: start: 20100907, end: 20100909

REACTIONS (3)
  - DEEP VEIN THROMBOSIS [None]
  - DYSPNOEA [None]
  - PULMONARY EMBOLISM [None]
